FAERS Safety Report 18806977 (Version 1)
Quarter: 2021Q1

REPORT INFORMATION
  Report Type: Spontaneous
  Country: DZ (occurrence: DZ)
  Receive Date: 20210129
  Receipt Date: 20210129
  Transmission Date: 20210419
  Serious: Yes (Death, Other)
  Sender: FDA-Public Use
  Company Number: DZ-CELGENEUS-DZA-20210105717

PATIENT
  Sex: Female

DRUGS (4)
  1. VIDAZA [Suspect]
     Active Substance: AZACITIDINE
     Indication: OFF LABEL USE
  2. REVLIMID [Suspect]
     Active Substance: LENALIDOMIDE
     Route: 048
     Dates: start: 202003
  3. VIDAZA [Suspect]
     Active Substance: AZACITIDINE
     Indication: CYTOGENETIC ABNORMALITY
     Route: 065
  4. REVLIMID [Suspect]
     Active Substance: LENALIDOMIDE
     Indication: 5Q MINUS SYNDROME
     Route: 048
     Dates: start: 2015

REACTIONS (4)
  - COVID-19 [Fatal]
  - Cytogenetic abnormality [Unknown]
  - Myelodysplastic syndrome transformation [Unknown]
  - Thrombocytopenia [Unknown]
